FAERS Safety Report 21781284 (Version 1)
Quarter: 2022Q4

REPORT INFORMATION
  Report Type: Spontaneous
  Country: US (occurrence: US)
  Receive Date: 20221227
  Receipt Date: 20221227
  Transmission Date: 20230113
  Serious: Yes (Other)
  Sender: FDA-Public Use
  Company Number: US-ASTELLAS-2022US041606

PATIENT
  Age: 76 Year
  Sex: Female

DRUGS (2)
  1. PADCEV [Suspect]
     Active Substance: ENFORTUMAB VEDOTIN-EJFV
     Indication: Transitional cell carcinoma
     Dosage: 1.25 MG/M2, CYCLIC (DAYS 1, 8, AND 15)
     Route: 065
     Dates: start: 20201124
  2. PADCEV [Suspect]
     Active Substance: ENFORTUMAB VEDOTIN-EJFV
     Dosage: 0.75 MG/M2, UNKNOWN FREQ.
     Route: 065
     Dates: start: 202110, end: 202202

REACTIONS (4)
  - Neuropathy peripheral [Unknown]
  - Rash erythematous [Recovering/Resolving]
  - Alopecia [Unknown]
  - Therapy partial responder [Unknown]
